FAERS Safety Report 13249614 (Version 1)
Quarter: 2017Q1

REPORT INFORMATION
  Report Type: Spontaneous
  Country: US (occurrence: US)
  Receive Date: 20170218
  Receipt Date: 20170218
  Transmission Date: 20170428
  Serious: No
  Sender: FDA-Public Use
  Company Number: US-ALLERGAN-1670099US

PATIENT
  Sex: Female

DRUGS (1)
  1. RESTASIS [Suspect]
     Active Substance: CYCLOSPORINE
     Indication: DRY EYE
     Dosage: 1 GTT, UNK
     Route: 047
     Dates: start: 2015

REACTIONS (3)
  - Ocular discomfort [Not Recovered/Not Resolved]
  - Dry eye [Not Recovered/Not Resolved]
  - Inappropriate schedule of drug administration [Unknown]
